FAERS Safety Report 7700962-0 (Version None)
Quarter: 2011Q3

REPORT INFORMATION
  Report Type: 
  Country: None (occurrence: None)
  Receive Date: 20110822
  Receipt Date: 20110811
  Transmission Date: 20111222
  Serious: Yes (Death, Hospitalization, Other)
  Sender: FDA-Public Use
  Company Number: JP-CELGENEUS-TAJPN-11-0120

PATIENT
  Sex: Female
  Weight: 60 kg

DRUGS (5)
  1. MEDROXYPROGESTERONE ACETATE [Concomitant]
     Dosage: 800 MILLIGRAM
     Route: 048
     Dates: start: 20110205, end: 20110208
  2. ABRAXANE [Suspect]
     Indication: BREAST CANCER METASTATIC
     Dosage: 200 MILLIGRAM
     Route: 041
     Dates: start: 20110205, end: 20110205
  3. MORPHINE [Concomitant]
     Route: 048
     Dates: start: 20110205, end: 20110201
  4. FENTOS [Concomitant]
     Route: 065
     Dates: start: 20110205, end: 20110201
  5. ZOMETA [Concomitant]
     Route: 041
     Dates: start: 20110205, end: 20110205

REACTIONS (9)
  - WHITE BLOOD CELL COUNT DECREASED [None]
  - ALANINE AMINOTRANSFERASE INCREASED [None]
  - HAEMOGLOBIN DECREASED [None]
  - SKIN DISORDER [None]
  - BLOOD BILIRUBIN INCREASED [None]
  - BREAST CANCER METASTATIC [None]
  - PLATELET COUNT DECREASED [None]
  - ASPARTATE AMINOTRANSFERASE INCREASED [None]
  - NEUTROPHIL COUNT DECREASED [None]
